FAERS Safety Report 7872001-2 (Version None)
Quarter: 2011Q4

REPORT INFORMATION
  Report Type: 
  Country: None (occurrence: None)
  Receive Date: 20111029
  Receipt Date: 20110311
  Transmission Date: 20120403
  Serious: No
  Sender: FDA-Public Use
  Company Number: US-AMGEN-USASP2011013843

PATIENT

DRUGS (1)
  1. ENBREL [Suspect]
     Indication: RHEUMATOID ARTHRITIS
     Dates: start: 20080215

REACTIONS (4)
  - INJECTION SITE SWELLING [None]
  - RASH GENERALISED [None]
  - INJECTION SITE REACTION [None]
  - INJECTION SITE PRURITUS [None]
